FAERS Safety Report 17600041 (Version 2)
Quarter: 2020Q3

REPORT INFORMATION
  Report Type: Spontaneous
  Country: CA (occurrence: CA)
  Receive Date: 20200330
  Receipt Date: 20200910
  Transmission Date: 20201102
  Serious: Yes (Hospitalization)
  Sender: FDA-Public Use
  Company Number: CA-BAYER-2020-050739

PATIENT
  Age: 52 Year
  Sex: Female

DRUGS (9)
  1. LORATADINE. [Suspect]
     Active Substance: LORATADINE
     Indication: PRODUCT USED FOR UNKNOWN INDICATION
     Dosage: 2 DF
     Route: 048
  2. PRASTERONE [Suspect]
     Active Substance: PRASTERONE
     Indication: MENOPAUSE
     Route: 067
  3. CLARITIN ALLERGY + SINUS [Concomitant]
     Active Substance: LORATADINE\PSEUDOEPHEDRINE SULFATE
     Indication: PRODUCT USED FOR UNKNOWN INDICATION
     Route: 048
  4. PRASTERONE [Suspect]
     Active Substance: PRASTERONE
     Route: 067
  5. PRASTERONE [Suspect]
     Active Substance: PRASTERONE
     Indication: PRODUCT USED FOR UNKNOWN INDICATION
     Route: 067
  6. BUDESONIDE. [Suspect]
     Active Substance: BUDESONIDE
     Indication: PRODUCT USED FOR UNKNOWN INDICATION
     Dosage: 1 DF, QD
     Route: 065
  7. CRINONE [Suspect]
     Active Substance: PROGESTERONE
     Indication: MENOPAUSE
     Route: 065
  8. ESTROGEL [Suspect]
     Active Substance: ESTRADIOL
     Indication: PRODUCT USED FOR UNKNOWN INDICATION
     Dosage: UNK
     Route: 065
  9. GLICLAZIDE [Concomitant]
     Active Substance: GLICLAZIDE
     Indication: PRODUCT USED FOR UNKNOWN INDICATION
     Route: 048

REACTIONS (11)
  - Swelling face [Unknown]
  - Head discomfort [None]
  - Off label use [None]
  - Periorbital oedema [Unknown]
  - Photosensitivity reaction [Unknown]
  - Rash [Unknown]
  - Cellulitis [Unknown]
  - Feeling hot [Unknown]
  - Headache [Unknown]
  - Butterfly rash [Unknown]
  - Tinnitus [Unknown]
